FAERS Safety Report 24094147 (Version 1)
Quarter: 2024Q3

REPORT INFORMATION
  Report Type: Spontaneous
  Country: FR (occurrence: None)
  Receive Date: 20240716
  Receipt Date: 20240716
  Transmission Date: 20241016
  Serious: Yes (Hospitalization)
  Sender: ORION
  Company Number: FR-Orion Corporation ORION PHARMA-ENTC2024-0083

PATIENT
  Age: 73 Year
  Sex: Female

DRUGS (2)
  1. STALEVO [Suspect]
     Active Substance: CARBIDOPA\ENTACAPONE\LEVODOPA
     Indication: Parkinson^s disease
     Dosage: STRENGTH: (175/43.75/200) MG;?1 DOSAGE FORM 7 TIMES PER DAY
     Dates: start: 2022
  2. STALEVO [Suspect]
     Active Substance: CARBIDOPA\ENTACAPONE\LEVODOPA
     Dosage: DOSE INCREASED
     Dates: start: 2024

REACTIONS (3)
  - Overdose [Unknown]
  - Agitation [Unknown]
  - Aphonia [Unknown]

NARRATIVE: CASE EVENT DATE: 20240709
